FAERS Safety Report 8308351-5 (Version None)
Quarter: 2012Q2

REPORT INFORMATION
  Report Type: 
  Country: None (occurrence: None)
  Receive Date: 20120424
  Receipt Date: 20120413
  Transmission Date: 20120825
  Serious: Yes (Other)
  Sender: FDA-Public Use
  Company Number: US-ROCHE-1059972

PATIENT
  Sex: Female
  Weight: 77.18 kg

DRUGS (5)
  1. HERCEPTIN [Suspect]
     Route: 042
     Dates: start: 20120412
  2. MINOCYCLINE HCL [Concomitant]
     Indication: HIDRADENITIS
     Route: 048
  3. DOCETAXEL [Concomitant]
     Indication: BREAST CANCER
     Route: 042
  4. HERCEPTIN [Suspect]
     Indication: BREAST CANCER
     Route: 042
     Dates: start: 20120315, end: 20120322
  5. CYTOXAN [Concomitant]
     Indication: BREAST CANCER
     Route: 042

REACTIONS (2)
  - HEADACHE [None]
  - TONGUE DISORDER [None]
